FAERS Safety Report 25477355 (Version 2)
Quarter: 2025Q4

REPORT INFORMATION
  Report Type: Spontaneous
  Country: EU (occurrence: EU)
  Receive Date: 20250625
  Receipt Date: 20251113
  Transmission Date: 20260118
  Serious: Yes (Hospitalization, Disabling, Other)
  Sender: IPCA
  Company Number: EU-DEXPHARM-2025-2738

PATIENT

DRUGS (19)
  1. METFORMIN [Suspect]
     Active Substance: METFORMIN HYDROCHLORIDE
     Indication: Product used for unknown indication
     Dosage: 850 MILLIGRAM, BID
     Route: 065
  2. METFORMIN [Suspect]
     Active Substance: METFORMIN HYDROCHLORIDE
     Dosage: 500 MILLIGRAM, BID
  3. CITALOPRAM [Suspect]
     Active Substance: CITALOPRAM
     Indication: Product used for unknown indication
     Dosage: 40 MILLIGRAM, QD
     Route: 065
  4. CITALOPRAM [Suspect]
     Active Substance: CITALOPRAM
     Dosage: 20 MILLIGRAM, QD
     Route: 065
  5. PANTOPRAZOLE [Suspect]
     Active Substance: PANTOPRAZOLE
     Indication: Product used for unknown indication
     Dosage: 40 MILLIGRAM, QD
     Route: 065
  6. PANTOPRAZOLE [Suspect]
     Active Substance: PANTOPRAZOLE
     Dosage: 20 MILLIGRAM, QD
     Route: 065
  7. METOPROLOL [Suspect]
     Active Substance: METOPROLOL
     Indication: Blood pressure measurement
     Dosage: UNK
     Route: 065
  8. SIMVASTATIN [Suspect]
     Active Substance: SIMVASTATIN
     Indication: Product used for unknown indication
     Dosage: UNK
     Route: 065
  9. HYDROCHLOROTHIAZIDE\RAMIPRIL [Suspect]
     Active Substance: HYDROCHLOROTHIAZIDE\RAMIPRIL
     Indication: Blood pressure measurement
     Dosage: 50 MG PER DAY
     Route: 065
  10. SITAGLIPTIN [Suspect]
     Active Substance: SITAGLIPTIN
     Indication: Product used for unknown indication
     Dosage: DOSE REDUCED FROM BID 50 MG TO 50 MG ONCE DAILY
     Route: 065
  11. SITAGLIPTIN [Suspect]
     Active Substance: SITAGLIPTIN
     Dosage: 50 MILLIGRAM, QD
     Route: 065
  12. TORSEMIDE [Suspect]
     Active Substance: TORSEMIDE
     Indication: Blood pressure measurement
     Dosage: UNK
     Route: 065
  13. PROMETHAZINE [Suspect]
     Active Substance: PROMETHAZINE HYDROCHLORIDE
     Indication: Product used for unknown indication
     Dosage: UNK
     Route: 065
  14. NALOXONE HYDROCHLORIDE\TILIDINE HYDROCHLORIDE [Suspect]
     Active Substance: NALOXONE HYDROCHLORIDE\TILIDINE HYDROCHLORIDE
     Indication: Product used for unknown indication
     Dosage: UNK
     Route: 065
  15. SCHWEDEN-TABLETTEN [Concomitant]
     Indication: Product used for unknown indication
     Dosage: UNK
     Route: 065
  16. ALLOPURINOL [Concomitant]
     Active Substance: ALLOPURINOL
     Indication: Product used for unknown indication
     Dosage: UNK
     Route: 065
  17. PROPIVERINE [Concomitant]
     Active Substance: PROPIVERINE
     Indication: Product used for unknown indication
     Dosage: UNK
     Route: 065
  18. BISOPROLOL [Concomitant]
     Active Substance: BISOPROLOL
     Indication: Product used for unknown indication
     Dosage: UNK
     Route: 065
  19. DIMENHYDRINATE [Concomitant]
     Active Substance: DIMENHYDRINATE
     Indication: Product used for unknown indication
     Dosage: UNK
     Route: 065

REACTIONS (17)
  - Inappropriate antidiuretic hormone secretion [Unknown]
  - Contusion [Recovered/Resolved]
  - Fall [Unknown]
  - Renal impairment [Unknown]
  - Craniofacial fracture [Recovered/Resolved]
  - Immobile [Unknown]
  - Prescribed overdose [Unknown]
  - Mobility decreased [Recovered/Resolved]
  - Dizziness [Recovered/Resolved]
  - Hyponatraemia [Recovering/Resolving]
  - Fatigue [Recovered/Resolved]
  - Lethargy [Recovered/Resolved]
  - Dysphagia [Recovered/Resolved]
  - Constipation [Recovered/Resolved]
  - Medication error [Unknown]
  - Fear of falling [Unknown]
  - Incorrect dose administered [Unknown]
